FAERS Safety Report 9344075 (Version 1)
Quarter: 2013Q2

REPORT INFORMATION
  Report Type: Report from Study
  Country: US (occurrence: US)
  Receive Date: 20130612
  Receipt Date: 20130612
  Transmission Date: 20140414
  Serious: Yes (Hospitalization)
  Sender: FDA-Public Use
  Company Number: US-SANOFI-AVENTIS-2013SA058759

PATIENT
  Sex: Male

DRUGS (1)
  1. AUBAGIO [Suspect]
     Indication: MULTIPLE SCLEROSIS
     Dates: end: 20130515

REACTIONS (5)
  - Pneumonia aspiration [Unknown]
  - Pyrexia [Unknown]
  - Vomiting [Unknown]
  - Heart rate increased [Unknown]
  - Dyspnoea [Unknown]
